FAERS Safety Report 15406404 (Version 1)
Quarter: 2018Q3

REPORT INFORMATION
  Report Type: Spontaneous
  Country: US (occurrence: US)
  Receive Date: 20180919
  Receipt Date: 20180919
  Transmission Date: 20181010
  Serious: Yes (Hospitalization)
  Sender: FDA-Public Use
  Company Number: None

PATIENT
  Age: 67 Year
  Sex: Male
  Weight: 95.25 kg

DRUGS (2)
  1. LISINOPRIL. [Concomitant]
     Active Substance: LISINOPRIL
  2. TESTOSTERONE CYPIONATE. [Suspect]
     Active Substance: TESTOSTERONE CYPIONATE
     Indication: BLOOD TESTOSTERONE DECREASED
     Dosage: ?          QUANTITY:1 DF DOSAGE FORM;OTHER ROUTE:OTHER ROUTE?
     Dates: start: 20180801, end: 20180831

REACTIONS (5)
  - Visual impairment [None]
  - Blood viscosity increased [None]
  - Dizziness [None]
  - Asthenia [None]
  - Hypertension [None]

NARRATIVE: CASE EVENT DATE: 2018
